FAERS Safety Report 9096994 (Version 1)
Quarter: 2013Q1

REPORT INFORMATION
  Report Type: Spontaneous
  Country: IE (occurrence: None)
  Receive Date: 20130124
  Receipt Date: 20130124
  Transmission Date: 20140127
  Serious: No
  Sender: FDA-Public Use
  Company Number: 2013P1001000

PATIENT
  Age: 68 Year
  Sex: Female

DRUGS (6)
  1. ZINACEF [Suspect]
     Indication: ANTIBIOTIC PROPHYLAXIS
     Route: 042
     Dates: start: 20121102, end: 20121102
  2. ZINACEF [Suspect]
     Indication: HIP ARTHROPLASTY
     Route: 042
     Dates: start: 20121102, end: 20121102
  3. HYOSCINE [Concomitant]
  4. THYROXINE SODIUM [Concomitant]
  5. DALMANE [Concomitant]
  6. LACRILUBE [Concomitant]

REACTIONS (6)
  - Erythema [None]
  - Bradycardia [None]
  - Hypotension [None]
  - Electrocardiogram ST segment elevation [None]
  - Dysgeusia [None]
  - Fall [None]
